FAERS Safety Report 17587241 (Version 1)
Quarter: 2020Q1

REPORT INFORMATION
  Report Type: Spontaneous
  Country: UZ (occurrence: US)
  Receive Date: 20200326
  Receipt Date: 20200326
  Transmission Date: 20200409
  Serious: No
  Sender: FDA-Public Use
  Company Number: US-BIOGEN-2020BI00841166

PATIENT
  Sex: Female

DRUGS (1)
  1. TECFIDERA [Suspect]
     Active Substance: DIMETHYL FUMARATE
     Indication: MULTIPLE SCLEROSIS
     Route: 048
     Dates: start: 20200109, end: 20200226

REACTIONS (4)
  - Neuralgia [Not Recovered/Not Resolved]
  - Product dose omission [Unknown]
  - Somnolence [Unknown]
  - Somnolence [Not Recovered/Not Resolved]
